FAERS Safety Report 8004489-0 (Version None)
Quarter: 2011Q4

REPORT INFORMATION
  Report Type: 
  Country: None (occurrence: None)
  Receive Date: 20111221
  Receipt Date: 20111221
  Transmission Date: 20120403
  Serious: No
  Sender: FDA-Public Use
  Company Number: None

PATIENT
  Sex: Female
  Weight: 77.52 kg

DRUGS (3)
  1. CYCLOPHOSPHAMIDE [Suspect]
     Dosage: 6937.5 MG
     Dates: end: 20111123
  2. RITUXIMAB (MOAB C2B8 ANTI CD20, CHIMERIC) [Suspect]
     Dosage: 4394 MG
     Dates: end: 20111121
  3. FLUDARABINE PHOSPHATE [Suspect]
     Dosage: 690 MG
     Dates: end: 20111123

REACTIONS (1)
  - FEBRILE NEUTROPENIA [None]
